FAERS Safety Report 14866158 (Version 1)
Quarter: 2018Q2

REPORT INFORMATION
  Report Type: Spontaneous
  Country: US (occurrence: US)
  Receive Date: 20180508
  Receipt Date: 20180508
  Transmission Date: 20180711
  Serious: No
  Sender: FDA-Public Use
  Company Number: US-ROCHE-2046985

PATIENT
  Age: 93 Year
  Sex: Female

DRUGS (6)
  1. LUMIGAN [Concomitant]
     Active Substance: BIMATOPROST
  2. SYNTHROID [Concomitant]
     Active Substance: LEVOTHYROXINE SODIUM
  3. SACCHAROMYCES CEREVISIAE. [Concomitant]
     Active Substance: SACCHAROMYCES CEREVISIAE
  4. ELIQUIS [Concomitant]
     Active Substance: APIXABAN
  5. ESBRIET [Suspect]
     Active Substance: PIRFENIDONE
     Indication: GLAUCOMA
     Route: 048
     Dates: start: 20160628
  6. METOPROLOL SUCCINATE. [Concomitant]
     Active Substance: METOPROLOL SUCCINATE

REACTIONS (5)
  - Intentional product use issue [Unknown]
  - Decreased appetite [Unknown]
  - Treatment noncompliance [Unknown]
  - Gastric disorder [Unknown]
  - Diarrhoea [Unknown]

NARRATIVE: CASE EVENT DATE: 20171222
